FAERS Safety Report 10589686 (Version 1)
Quarter: 2014Q4

REPORT INFORMATION
  Report Type: Spontaneous
  Country: US (occurrence: None)
  Receive Date: 20141117
  Receipt Date: 20141117
  Transmission Date: 20150529
  Serious: Yes (Disabling)
  Sender: FDA-Public Use
  Company Number: None

PATIENT
  Age: 33 Year
  Sex: Female
  Weight: 50 kg

DRUGS (1)
  1. MIRENA [Suspect]
     Active Substance: LEVONORGESTREL
     Dosage: ONE IUD ONE INSERTION VAGINAL
     Route: 067
     Dates: start: 20111110, end: 20141113

REACTIONS (11)
  - Headache [None]
  - Weight increased [None]
  - Abdominal distension [None]
  - Anger [None]
  - Fatigue [None]
  - Insomnia [None]
  - Breast tenderness [None]
  - Depression [None]
  - Anxiety [None]
  - Flatulence [None]
  - Mood swings [None]
